FAERS Safety Report 13379251 (Version 2)
Quarter: 2017Q1

REPORT INFORMATION
  Report Type: Report from Study
  Country: US (occurrence: US)
  Receive Date: 20170328
  Receipt Date: 20170331
  Transmission Date: 20170429
  Serious: Yes (Hospitalization, Other)
  Sender: FDA-Public Use
  Company Number: US-GILEAD-2017-0264632

PATIENT
  Age: 50 Year
  Sex: Female

DRUGS (1)
  1. AMBRISENTAN [Suspect]
     Active Substance: AMBRISENTAN
     Indication: PULMONARY HYPERTENSION
     Dosage: 5 MG, QD
     Route: 065
     Dates: start: 20071011

REACTIONS (6)
  - Right ventricular failure [Unknown]
  - Respiratory failure [Unknown]
  - Malaise [Unknown]
  - Lung disorder [Unknown]
  - Pneumonia [Unknown]
  - Cardiac disorder [Unknown]
